FAERS Safety Report 21831080 (Version 1)
Quarter: 2023Q1

REPORT INFORMATION
  Report Type: Spontaneous
  Country: US (occurrence: US)
  Receive Date: 20230106
  Receipt Date: 20230106
  Transmission Date: 20230417
  Serious: No
  Sender: FDA-Public Use
  Company Number: US-TAKEDA-2022TUS103316

PATIENT
  Age: 71 Year
  Sex: Male

DRUGS (2)
  1. CARBATROL [Suspect]
     Active Substance: CARBAMAZEPINE
     Indication: Product used for unknown indication
     Dosage: UNK
     Route: 065
  2. PAXLOVID [Suspect]
     Active Substance: NIRMATRELVIR\RITONAVIR
     Indication: Product used for unknown indication
     Dosage: UNK
     Route: 065
     Dates: start: 20221222

REACTIONS (7)
  - Disorientation [Unknown]
  - Reading disorder [Unknown]
  - Visual impairment [Unknown]
  - Gait inability [Unknown]
  - Cough [Unknown]
  - Dizziness [Unknown]
  - Speech disorder [Unknown]
